FAERS Safety Report 5355286-6 (Version None)
Quarter: 2007Q2

REPORT INFORMATION
  Report Type: 
  Country: None (occurrence: None)
  Receive Date: 20070531
  Receipt Date: 20070303
  Transmission Date: 20071010
  Serious: Yes (Other)
  Sender: FDA-Public Use
  Company Number: 2007004409

PATIENT

DRUGS (1)
  1. SOLU-MEDROL [Suspect]
     Indication: DYSPNOEA
     Dosage: (125 MG, FREQUENCY: ONCE)
     Dates: start: 20070107

REACTIONS (3)
  - HYPERSENSITIVITY [None]
  - RASH [None]
  - URTICARIA [None]
